FAERS Safety Report 7199160-1 (Version None)
Quarter: 2010Q4

REPORT INFORMATION
  Report Type: 
  Country: None (occurrence: None)
  Receive Date: 20101223
  Receipt Date: 20101223
  Transmission Date: 20110411
  Serious: Yes (Death, Hospitalization)
  Sender: FDA-Public Use
  Company Number: None

PATIENT
  Sex: Male
  Weight: 34.5 kg

DRUGS (6)
  1. CYCLOPHOSPHAMIDE [Suspect]
     Dosage: 2300 MG
     Dates: end: 20101025
  2. CYTARABINE [Suspect]
     Dosage: 1372 MG
     Dates: end: 20101104
  3. MERCAPTOPURINE [Suspect]
     Dosage: 1200 MG
     Dates: end: 20101108
  4. METHOTREXATE [Suspect]
     Dosage: 60 MG
     Dates: end: 20101004
  5. PEG-L-ASPARAGINASE(K-H) [Suspect]
     Dosage: 5625 IU
     Dates: end: 20101109
  6. VINCRISTINE SULFATE [Suspect]
     Dosage: 6.8 MG
     Dates: end: 20101115

REACTIONS (6)
  - ANAEMIA [None]
  - CARDIO-RESPIRATORY ARREST [None]
  - HAEMORRHAGE [None]
  - NEUTROPENIA [None]
  - PNEUMONIA FUNGAL [None]
  - THROMBOCYTOPENIA [None]
